FAERS Safety Report 6045045-3 (Version None)
Quarter: 2009Q1

REPORT INFORMATION
  Report Type: 
  Country: None (occurrence: None)
  Receive Date: 20090121
  Receipt Date: 20090113
  Transmission Date: 20090719
  Serious: Yes (Life-Threatening, Hospitalization)
  Sender: FDA-Public Use
  Company Number: JP-BRISTOL-MYERS SQUIBB COMPANY-14449979

PATIENT
  Age: 15 Year
  Sex: Female
  Weight: 52 kg

DRUGS (6)
  1. ABILIFY [Suspect]
     Indication: SCHIZOPHRENIA
     Dosage: TABLET 6 MG
     Route: 048
     Dates: start: 20080718, end: 20081126
  2. DEPAKENE [Concomitant]
     Dosage: SLOW RELEASE TABLET
     Dates: start: 20080725
  3. SENNOSIDE A [Concomitant]
     Dosage: TABLET
     Dates: start: 20080730
  4. MAGNESIUM OXIDE [Concomitant]
     Dosage: POWDER
     Dates: start: 20080806
  5. RIVOTRIL [Concomitant]
     Dosage: TABLET
     Dates: start: 20080823, end: 20081029
  6. POLYCARBOPHIL CALCIUM [Concomitant]
     Dosage: TABLET
     Dates: start: 20080828

REACTIONS (1)
  - CONVULSION [None]
